FAERS Safety Report 22655580 (Version 1)
Quarter: 2023Q2

REPORT INFORMATION
  Report Type: Report from Study
  Country: US (occurrence: US)
  Receive Date: 20230629
  Receipt Date: 20230629
  Transmission Date: 20230722
  Serious: Yes (Other)
  Sender: FDA-Public Use
  Company Number: US-JAZZ-2023-US-002008

PATIENT
  Age: 30 Year
  Sex: Male

DRUGS (6)
  1. XYREM [Suspect]
     Active Substance: SODIUM OXYBATE
     Indication: Narcolepsy
     Dosage: UNK
  2. XYREM [Suspect]
     Active Substance: SODIUM OXYBATE
     Indication: Cataplexy
  3. XYREM [Suspect]
     Active Substance: SODIUM OXYBATE
     Indication: Somnolence
  4. VALIUM [Concomitant]
     Active Substance: DIAZEPAM
     Dosage: 0000
     Dates: start: 20230126
  5. PREDNISOLONE ACCORD [Concomitant]
     Dosage: 0000
     Dates: start: 20230126
  6. OFLOXACIN [Concomitant]
     Active Substance: OFLOXACIN
     Dosage: 0000
     Dates: start: 20230126

REACTIONS (3)
  - Nephrolithiasis [Unknown]
  - Keratomileusis [Unknown]
  - Toothache [Unknown]

NARRATIVE: CASE EVENT DATE: 20220601
